FAERS Safety Report 5025922-2 (Version None)
Quarter: 2006Q2

REPORT INFORMATION
  Report Type: 
  Country: None (occurrence: None)
  Receive Date: 20060608
  Receipt Date: 20060531
  Transmission Date: 20061013
  Serious: Yes (Hospitalization)
  Sender: FDA-Public Use
  Company Number: HQWYE580531MAY06

PATIENT
  Age: 19 Year
  Sex: Male

DRUGS (5)
  1. RAPAMUNE [Suspect]
     Indication: PROPHYLAXIS AGAINST TRANSPLANT REJECTION
     Dosage: 2 MG 1X PER 1 DAY ORAL
     Route: 048
     Dates: start: 20060430, end: 20060504
  2. GANCICLOVIR [Concomitant]
  3. VANCOMYCIN [Concomitant]
  4. PREDNISOLONE [Concomitant]
  5. CYCLOSPORINE [Concomitant]

REACTIONS (4)
  - DIALYSIS [None]
  - DRUG INEFFECTIVE [None]
  - HAEMOGLOBIN DECREASED [None]
  - KIDNEY TRANSPLANT REJECTION [None]
